FAERS Safety Report 10547847 (Version 1)
Quarter: 2014Q4

REPORT INFORMATION
  Report Type: Spontaneous
  Country: US (occurrence: None)
  Receive Date: 20141024
  Receipt Date: 20141024
  Transmission Date: 20150529
  Serious: Yes (Other)
  Sender: FDA-Public Use
  Company Number: None

PATIENT
  Age: 65 Year
  Sex: Male
  Weight: 89.1 kg

DRUGS (1)
  1. QUETIAPINE [Suspect]
     Active Substance: QUETIAPINE
     Indication: BIPOLAR I DISORDER
     Route: 048
     Dates: start: 20131001, end: 20131002

REACTIONS (3)
  - Agitation [None]
  - Akathisia [None]
  - Restlessness [None]

NARRATIVE: CASE EVENT DATE: 20131001
